FAERS Safety Report 6542964-6 (Version None)
Quarter: 2010Q1

REPORT INFORMATION
  Report Type: 
  Country: None (occurrence: None)
  Receive Date: 20100114
  Receipt Date: 20100106
  Transmission Date: 20100710
  Serious: Yes (Other)
  Sender: FDA-Public Use
  Company Number: 2010SP001074

PATIENT
  Age: 30 Year
  Sex: Female
  Weight: 57 kg

DRUGS (1)
  1. REMERON [Suspect]
     Indication: DEPRESSION
     Dosage: ; PO
     Route: 048
     Dates: start: 20091101

REACTIONS (5)
  - APATHY [None]
  - DISTURBANCE IN ATTENTION [None]
  - FATIGUE [None]
  - LETHARGY [None]
  - SOMNOLENCE [None]
